FAERS Safety Report 16252490 (Version 1)
Quarter: 2019Q2

REPORT INFORMATION
  Report Type: Spontaneous
  Country: GB (occurrence: GB)
  Receive Date: 20190429
  Receipt Date: 20190429
  Transmission Date: 20190711
  Serious: Yes (Other)
  Sender: FDA-Public Use
  Company Number: GB-MYLANLABS-2019M1040132

PATIENT
  Sex: Female

DRUGS (7)
  1. TAXOTERE [Concomitant]
     Active Substance: DOCETAXEL
  2. EPIRUBICIN [Concomitant]
     Active Substance: EPIRUBICIN
  3. CARBOPLATIN. [Concomitant]
     Active Substance: CARBOPLATIN
  4. CAPECITABINE. [Suspect]
     Active Substance: CAPECITABINE
     Indication: BREAST CANCER
     Dosage: UNK
     Route: 065
  5. GEMCITABINE [Concomitant]
     Active Substance: GEMCITABINE\GEMCITABINE HYDROCHLORIDE
  6. CYCLOPHOSPHAMIDE. [Concomitant]
     Active Substance: CYCLOPHOSPHAMIDE
  7. 5-FU                               /00098801/ [Concomitant]
     Active Substance: FLUOROURACIL

REACTIONS (2)
  - Breast cancer metastatic [Unknown]
  - Drug ineffective [Unknown]
